FAERS Safety Report 22753218 (Version 2)
Quarter: 2024Q2

REPORT INFORMATION
  Report Type: Spontaneous
  Country: JP (occurrence: JP)
  Receive Date: 20230726
  Receipt Date: 20240429
  Transmission Date: 20240716
  Serious: Yes (Other)
  Sender: FDA-Public Use
  Company Number: JP-ABBVIE-5342278

PATIENT
  Age: 50 Year
  Sex: Male

DRUGS (2)
  1. HUMIRA [Suspect]
     Active Substance: ADALIMUMAB
     Indication: Hidradenitis
     Dosage: FORM STRENGTH 80 MILLIGRAMS
     Route: 058
     Dates: start: 20230501
  2. HUMIRA [Suspect]
     Active Substance: ADALIMUMAB
     Dosage: FORM STRENGTH -80 MILLIGRAMS
     Route: 058

REACTIONS (6)
  - Inflammation [Recovered/Resolved]
  - Swelling [Recovered/Resolved]
  - Surgery [Recovered/Resolved]
  - Surgery [Recovered/Resolved]
  - Impaired healing [Recovered/Resolved]
  - Groin pain [Recovered/Resolved]

NARRATIVE: CASE EVENT DATE: 20230101
